FAERS Safety Report 8430358 (Version 2)
Quarter: 2014Q1

REPORT INFORMATION
  Report Type: Spontaneous
  Country: US (occurrence: US)
  Receive Date: 20120228
  Receipt Date: 20140130
  Transmission Date: 20141002
  Serious: No
  Sender: FDA-Public Use
  Company Number: US-JNJFOC-20120209412

PATIENT
  Sex: Male
  Weight: 140.62 kg

DRUGS (11)
  1. DURAGESIC [Suspect]
     Indication: PAIN MANAGEMENT
     Route: 062
     Dates: start: 201107, end: 201108
  2. DURAGESIC [Suspect]
     Indication: PAIN MANAGEMENT
     Route: 062
     Dates: start: 201108, end: 201111
  3. DURAGESIC [Suspect]
     Indication: PAIN MANAGEMENT
     Route: 062
     Dates: start: 20120105, end: 20120215
  4. DURAGESIC [Suspect]
     Indication: PAIN MANAGEMENT
     Route: 062
     Dates: start: 20120215
  5. DURAGESIC [Suspect]
     Indication: PAIN MANAGEMENT
     Route: 062
     Dates: start: 201111, end: 2011
  6. DURAGESIC [Suspect]
     Indication: PAIN MANAGEMENT
     Route: 062
     Dates: start: 2011, end: 20111220
  7. WARFARIN [Concomitant]
     Indication: THROMBOSIS PROPHYLAXIS
     Route: 048
     Dates: start: 2007
  8. DILTIAZEM [Concomitant]
     Indication: PRODUCT USED FOR UNKNOWN INDICATION
     Route: 048
     Dates: start: 2010
  9. HYDROCHLOROTHIAZIDE [Concomitant]
     Indication: DIURETIC THERAPY
     Route: 048
     Dates: start: 2011
  10. HYDROCHLOROTHIAZIDE [Concomitant]
     Indication: BLOOD PRESSURE
     Route: 048
     Dates: start: 2011
  11. MORPHINE [Concomitant]
     Indication: BREAKTHROUGH PAIN
     Route: 048

REACTIONS (5)
  - Wrong technique in drug usage process [Recovered/Resolved]
  - Hyperhidrosis [Not Recovered/Not Resolved]
  - Drug effect decreased [Not Recovered/Not Resolved]
  - Product quality issue [Unknown]
  - Product quality issue [Unknown]
